FAERS Safety Report 5817490-X (Version None)
Quarter: 2008Q3

REPORT INFORMATION
  Report Type: 
  Country: None (occurrence: None)
  Receive Date: 20080722
  Receipt Date: 20080702
  Transmission Date: 20090109
  Serious: Yes (Other)
  Sender: FDA-Public Use
  Company Number: CY-AVENTIS-200816783GDDC

PATIENT
  Age: 32 Year
  Sex: Male
  Weight: 70 kg

DRUGS (1)
  1. ARAVA [Suspect]
     Route: 048
     Dates: start: 20070901, end: 20080301

REACTIONS (1)
  - HEPATITIS [None]
